FAERS Safety Report 9707307 (Version 1)
Quarter: 2013Q4

REPORT INFORMATION
  Report Type: Spontaneous
  Country: US (occurrence: US)
  Receive Date: 20131125
  Receipt Date: 20131125
  Transmission Date: 20140711
  Serious: No
  Sender: FDA-Public Use
  Company Number: US-GLAXOSMITHKLINE-A1004913A

PATIENT
  Age: 61 Year
  Sex: Female

DRUGS (7)
  1. FLOVENT [Suspect]
     Indication: ASTHMA
     Dosage: 2PUFF TWICE PER DAY
     Route: 055
  2. SINGULAIR [Concomitant]
  3. TRAZODONE [Concomitant]
  4. CYCLOBENZAPRINE [Concomitant]
  5. PAXIL [Concomitant]
  6. LISINOPRIL + HYDROCHLOROTHIAZIDE [Concomitant]
  7. ZYRTEC [Concomitant]

REACTIONS (1)
  - Tongue discolouration [Not Recovered/Not Resolved]
